FAERS Safety Report 13614248 (Version 2)
Quarter: 2017Q2

REPORT INFORMATION
  Report Type: Spontaneous
  Country: DZ (occurrence: DZ)
  Receive Date: 20170606
  Receipt Date: 20170609
  Transmission Date: 20170830
  Serious: Yes (Other)
  Sender: FDA-Public Use
  Company Number: DZ-ABBVIE-17K-003-1997621-00

PATIENT

DRUGS (1)
  1. HUMIRA [Suspect]
     Active Substance: ADALIMUMAB
     Indication: ACUTE HAEMORRHAGIC ULCERATIVE COLITIS
     Route: 058

REACTIONS (1)
  - Mycobacterium tuberculosis complex test [Unknown]
